FAERS Safety Report 15219494 (Version 1)
Quarter: 2018Q3

REPORT INFORMATION
  Report Type: Spontaneous
  Country: US (occurrence: US)
  Receive Date: 20180731
  Receipt Date: 20180731
  Transmission Date: 20181010
  Serious: No
  Sender: FDA-Public Use
  Company Number: US-009507513-1807USA004550

PATIENT
  Sex: Female

DRUGS (2)
  1. NEXPLANON [Suspect]
     Active Substance: ETONOGESTREL
     Dosage: IMPLANT
     Route: 023
  2. NEXPLANON [Suspect]
     Active Substance: ETONOGESTREL
     Dosage: A NEW NEXPLANON

REACTIONS (4)
  - Device kink [Recovered/Resolved]
  - No adverse event [Unknown]
  - Device breakage [Recovered/Resolved]
  - Product use issue [Unknown]
